FAERS Safety Report 5502377-2 (Version None)
Quarter: 2007Q4

REPORT INFORMATION
  Report Type: 
  Country: None (occurrence: None)
  Receive Date: 20071030
  Receipt Date: 20071018
  Transmission Date: 20080405
  Serious: Yes (Hospitalization)
  Sender: FDA-Public Use
  Company Number: NO-PFIZER INC-2005138974

PATIENT
  Sex: Female

DRUGS (2)
  1. ETHOSUXIMIDE [Suspect]
     Indication: EPILEPSY
     Route: 048
     Dates: start: 20041101, end: 20050319
  2. LAMICTAL [Suspect]
     Indication: EPILEPSY
     Route: 048
     Dates: start: 20030101, end: 20050509

REACTIONS (3)
  - APLASTIC ANAEMIA [None]
  - MUCOSAL HAEMORRHAGE [None]
  - PANCYTOPENIA [None]
